FAERS Safety Report 9398669 (Version 3)
Quarter: 2013Q4

REPORT INFORMATION
  Report Type: Spontaneous
  Country: US (occurrence: US)
  Receive Date: 20130712
  Receipt Date: 20131003
  Transmission Date: 20140711
  Serious: Yes (Hospitalization, Other)
  Sender: FDA-Public Use
  Company Number: US-PFIZER INC-2013205460

PATIENT
  Sex: Male

DRUGS (2)
  1. LYRICA [Suspect]
     Dosage: 75 MG, 2X/DAY
     Route: 048
  2. SYNTHROID [Concomitant]
     Dosage: 50 UG, UNK

REACTIONS (6)
  - Respiratory failure [Unknown]
  - Sepsis [Unknown]
  - Infection [Unknown]
  - Tracheal disorder [Unknown]
  - Speech disorder [Unknown]
  - Malaise [Unknown]
